FAERS Safety Report 12556357 (Version 1)
Quarter: 2016Q3

REPORT INFORMATION
  Report Type: Spontaneous
  Country: CN (occurrence: CN)
  Receive Date: 20160714
  Receipt Date: 20160714
  Transmission Date: 20161109
  Serious: Yes (Other)
  Sender: FDA-Public Use
  Company Number: CN-PFIZER INC-2016336902

PATIENT
  Age: 80 Year
  Sex: Female
  Weight: 51 kg

DRUGS (1)
  1. ZYVOX [Suspect]
     Active Substance: LINEZOLID
     Indication: THERAPEUTIC PROCEDURE
     Dosage: 0.6 G, 1X/DAY
     Route: 048
     Dates: start: 20150717, end: 20150717

REACTIONS (1)
  - Hypertension [Recovering/Resolving]

NARRATIVE: CASE EVENT DATE: 20150717
